FAERS Safety Report 18380932 (Version 1)
Quarter: 2020Q4

REPORT INFORMATION
  Report Type: Spontaneous
  Country: FR (occurrence: FR)
  Receive Date: 20201014
  Receipt Date: 20201014
  Transmission Date: 20210114
  Serious: Yes (Other)
  Sender: FDA-Public Use
  Company Number: FR-BAUSCH-BL-2020-029547

PATIENT
  Age: 55 Year
  Sex: Female
  Weight: 91 kg

DRUGS (3)
  1. BUDESONIDE. [Suspect]
     Active Substance: BUDESONIDE
     Indication: AUTOIMMUNE HEPATITIS
     Route: 048
     Dates: start: 20190706, end: 20190711
  2. BUDESONIDE. [Suspect]
     Active Substance: BUDESONIDE
     Indication: PRODUCT USE IN UNAPPROVED INDICATION
  3. CORTANCYL [Suspect]
     Active Substance: PREDNISONE
     Indication: ALLOIMMUNE HEPATITIS
     Route: 048
     Dates: start: 20190711, end: 202005

REACTIONS (3)
  - Diabetes mellitus [Recovered/Resolved]
  - Product use in unapproved indication [Recovered/Resolved]
  - Adrenal insufficiency [Unknown]

NARRATIVE: CASE EVENT DATE: 20190706
